FAERS Safety Report 6487696-8 (Version None)
Quarter: 2009Q4

REPORT INFORMATION
  Report Type: 
  Country: None (occurrence: None)
  Receive Date: 20091209
  Receipt Date: 20091209
  Transmission Date: 20100525
  Serious: Yes (Hospitalization)
  Sender: FDA-Public Use
  Company Number: None

PATIENT
  Age: 58 Year
  Sex: Male
  Weight: 78 kg

DRUGS (2)
  1. ASPIRIN [Suspect]
     Dosage: 81MG DAILY PO CHRONIC
     Route: 048
  2. M.V.I. [Concomitant]

REACTIONS (3)
  - EROSIVE OESOPHAGITIS [None]
  - GASTRITIS EROSIVE [None]
  - GASTROINTESTINAL HAEMORRHAGE [None]
